FAERS Safety Report 5710346-2 (Version None)
Quarter: 2008Q2

REPORT INFORMATION
  Report Type: 
  Country: None (occurrence: None)
  Receive Date: 20080418
  Receipt Date: 20080410
  Transmission Date: 20081010
  Serious: Yes (Life-Threatening)
  Sender: FDA-Public Use
  Company Number: FR-ABBOTT-05P-056-0304467-00

PATIENT
  Age: 57 Year
  Sex: Female

DRUGS (7)
  1. LOPINARVIR/RITONAVIR [Suspect]
     Indication: HIV INFECTION
     Route: 048
     Dates: start: 20040315
  2. ATOVAQUONE [Concomitant]
     Indication: PNEUMOCYSTIS JIROVECI PNEUMONIA
     Route: 048
     Dates: start: 20040406, end: 20050513
  3. EMTRICITABINE [Concomitant]
     Indication: HIV INFECTION
     Route: 048
     Dates: start: 20040406, end: 20050217
  4. LAMIVUDINE [Concomitant]
     Indication: HIV INFECTION
     Dosage: NOT REPORTED
  5. ABACAVIR [Concomitant]
     Indication: HIV INFECTION
     Dosage: NOT REPORTED
  6. ZIDOVUDINE [Concomitant]
     Indication: HIV INFECTION
     Dosage: NOT REPORTED
  7. COTRIMOXAZOLE [Concomitant]
     Indication: PNEUMOCYSTIS JIROVECI PNEUMONIA
     Dosage: NOT REPORTED

REACTIONS (1)
  - PULMONARY EMBOLISM [None]
